FAERS Safety Report 23461098 (Version 1)
Quarter: 2024Q1

REPORT INFORMATION
  Report Type: Report from Study
  Country: LT (occurrence: LT)
  Receive Date: 20240131
  Receipt Date: 20240131
  Transmission Date: 20240410
  Serious: Yes (Other)
  Sender: FDA-Public Use
  Company Number: LT-VER-202400001

PATIENT
  Age: 75 Year
  Sex: Male

DRUGS (2)
  1. TRIPTORELIN PAMOATE [Suspect]
     Active Substance: TRIPTORELIN PAMOATE
     Indication: Prostate cancer
     Dosage: 22.5 MG VIA SUBCUTANEOUS ROUTE WITH A FREQUENCY OF SIX MONTH; RIGHT ABDOMINAL REGION, POWDER AND SOL
     Route: 058
     Dates: start: 20230808, end: 20230808
  2. TRIPTORELIN PAMOATE [Suspect]
     Active Substance: TRIPTORELIN PAMOATE
     Indication: Prostate cancer
     Dosage: LEFT ABDOMINAL REGION (22.5 MG,6 M), POWDER AND SOLVENT FOR SUSPENSION FOR  INJECTION
     Route: 058
     Dates: start: 20230224, end: 20230224

REACTIONS (1)
  - Lyme disease [Recovered/Resolved]

NARRATIVE: CASE EVENT DATE: 20230705
